FAERS Safety Report 9789915 (Version 1)
Quarter: 2013Q4

REPORT INFORMATION
  Report Type: Spontaneous
  Country: US (occurrence: None)
  Receive Date: 20131230
  Receipt Date: 20131230
  Transmission Date: 20140711
  Serious: No
  Sender: FDA-Public Use
  Company Number: None

PATIENT
  Age: 38 Year
  Sex: Female
  Weight: 84.82 kg

DRUGS (3)
  1. DAYQUIL [Suspect]
     Indication: NASAL CONGESTION
     Dates: start: 20131226, end: 20131226
  2. DAYQUIL [Suspect]
     Indication: OROPHARYNGEAL PAIN
     Dates: start: 20131226, end: 20131226
  3. DAYQUIL [Suspect]
     Indication: PAIN
     Dates: start: 20131226, end: 20131226

REACTIONS (10)
  - Feeling abnormal [None]
  - Dizziness [None]
  - Dizziness [None]
  - Dizziness [None]
  - Thinking abnormal [None]
  - Dysarthria [None]
  - Swelling face [None]
  - Blood pressure increased [None]
  - Product quality issue [None]
  - No reaction on previous exposure to drug [None]
